FAERS Safety Report 6634780-1 (Version None)
Quarter: 2010Q1

REPORT INFORMATION
  Report Type: 
  Country: None (occurrence: None)
  Receive Date: 20100315
  Receipt Date: 20100301
  Transmission Date: 20100710
  Serious: Yes (Disabling)
  Sender: FDA-Public Use
  Company Number: US-PFIZER INC-2010027202

PATIENT
  Sex: Female

DRUGS (2)
  1. NEURONTIN [Suspect]
     Indication: NEUROPATHY PERIPHERAL
     Dosage: 100 MG, 4X/DAY
     Dates: start: 20060101, end: 20080701
  2. LYRICA [Suspect]
     Indication: FIBROMYALGIA
     Dosage: 100 MG, 2X/DAY
     Dates: start: 20090101, end: 20091101

REACTIONS (6)
  - DRUG INEFFECTIVE [None]
  - FIBROMYALGIA [None]
  - HOT FLUSH [None]
  - HUNGER [None]
  - SPINAL CORD DISORDER [None]
  - WEIGHT INCREASED [None]
